FAERS Safety Report 5032895-5 (Version None)
Quarter: 2006Q2

REPORT INFORMATION
  Report Type: 
  Country: None (occurrence: None)
  Receive Date: 20060622
  Receipt Date: 20060616
  Transmission Date: 20061013
  Serious: Yes (Other)
  Sender: FDA-Public Use
  Company Number: FR-AVENTIS-200612186FR

PATIENT
  Age: 25 Year
  Sex: Female

DRUGS (3)
  1. KETEK [Suspect]
     Indication: VIRAL INFECTION
     Route: 048
     Dates: start: 20060201
  2. DOLIPRANE [Suspect]
     Indication: VIRAL INFECTION
  3. VITAMINE C [Concomitant]
     Indication: VIRAL INFECTION
     Dates: start: 20060201

REACTIONS (4)
  - CHROMATURIA [None]
  - FATIGUE [None]
  - HEPATITIS [None]
  - JAUNDICE [None]
